FAERS Safety Report 24874153 (Version 1)
Quarter: 2025Q1

REPORT INFORMATION
  Report Type: Report from Study
  Country: US (occurrence: US)
  Receive Date: 20250122
  Receipt Date: 20250122
  Transmission Date: 20250408
  Serious: Yes (Hospitalization)
  Sender: EISAI
  Company Number: US-Eisai-EC-2024-181657

PATIENT
  Age: 76 Year
  Sex: Female

DRUGS (2)
  1. LENVIMA [Suspect]
     Active Substance: LENVATINIB
     Indication: Uterine cancer
     Route: 048
     Dates: start: 20241221, end: 20250104
  2. LENVIMA [Suspect]
     Active Substance: LENVATINIB
     Route: 048
     Dates: start: 20250105

REACTIONS (8)
  - Pulmonary embolism [Unknown]
  - Fatigue [Unknown]
  - Decreased appetite [Unknown]
  - Pain [Unknown]
  - Urine output decreased [Unknown]
  - Joint swelling [Unknown]
  - Peripheral swelling [Unknown]
  - Chromaturia [Unknown]

NARRATIVE: CASE EVENT DATE: 20241201
